FAERS Safety Report 11389913 (Version 7)
Quarter: 2016Q2

REPORT INFORMATION
  Report Type: Report from Study
  Country: CA (occurrence: CA)
  Receive Date: 20150818
  Receipt Date: 20160420
  Transmission Date: 20160815
  Serious: Yes (Other)
  Sender: FDA-Public Use
  Company Number: CA-ROCHE-1381239

PATIENT
  Age: 38 Year
  Sex: Female
  Weight: 63.5 kg

DRUGS (10)
  1. SOLU-MEDROL [Concomitant]
     Active Substance: METHYLPREDNISOLONE SODIUM SUCCINATE
     Indication: PREMEDICATION
     Route: 042
     Dates: start: 20130808
  2. TYLENOL [Concomitant]
     Active Substance: ACETAMINOPHEN
     Indication: PREMEDICATION
     Route: 048
     Dates: start: 20130808
  3. HERBAL TEA [Concomitant]
  4. RITUXAN [Suspect]
     Active Substance: RITUXIMAB
     Indication: PEMPHIGUS
     Dosage: LAST DOSE OF RITUXIMAB: 08/MAY/2014.
     Route: 042
     Dates: start: 20130808
  5. RITUXAN [Suspect]
     Active Substance: RITUXIMAB
     Route: 042
     Dates: start: 20150831
  6. ABILIFY [Suspect]
     Active Substance: ARIPIPRAZOLE
     Indication: PRODUCT USED FOR UNKNOWN INDICATION
     Route: 065
  7. BENADRYL [Concomitant]
     Active Substance: DIPHENHYDRAMINE HYDROCHLORIDE
     Indication: PREMEDICATION
     Route: 048
     Dates: start: 20130808
  8. VITAMIN C [Concomitant]
     Active Substance: ASCORBIC ACID
  9. CELLCEPT [Concomitant]
     Active Substance: MYCOPHENOLATE MOFETIL\MYCOPHENOLATE MOFETIL HYDROCHLORIDE
  10. PREDNISONE. [Concomitant]
     Active Substance: PREDNISONE

REACTIONS (17)
  - Schizophrenia [Not Recovered/Not Resolved]
  - Weight decreased [Unknown]
  - Drug effect decreased [Unknown]
  - Heart rate decreased [Unknown]
  - Blood pressure diastolic decreased [Unknown]
  - Hypotension [Unknown]
  - Urinary tract infection [Recovered/Resolved]
  - Weight increased [Unknown]
  - Eye pruritus [Recovered/Resolved]
  - Asthenia [Recovered/Resolved]
  - Pemphigus [Not Recovered/Not Resolved]
  - Off label use [Unknown]
  - Ocular hyperaemia [Recovered/Resolved]
  - Arthralgia [Recovered/Resolved]
  - Fatigue [Recovered/Resolved]
  - Pemphigoid [Unknown]
  - Eye irritation [Recovered/Resolved]

NARRATIVE: CASE EVENT DATE: 2014
